FAERS Safety Report 13994724 (Version 1)
Quarter: 2017Q3

REPORT INFORMATION
  Report Type: Spontaneous
  Country: US (occurrence: US)
  Receive Date: 20170921
  Receipt Date: 20170921
  Transmission Date: 20171128
  Serious: Yes (Disabling)
  Sender: FDA-Public Use
  Company Number: None

PATIENT
  Age: 46 Year
  Sex: Female
  Weight: 69.75 kg

DRUGS (7)
  1. OXYCODONE [Concomitant]
     Active Substance: OXYCODONE
  2. VITAMIN C [Concomitant]
     Active Substance: ASCORBIC ACID
  3. LUPRON DEPOT [Suspect]
     Active Substance: LEUPROLIDE ACETATE
     Indication: ENDOMETRIOSIS
     Dosage: ?          OTHER FREQUENCY:1 INJECTION PER MO;?
     Route: 030
     Dates: start: 20090910
  4. ZYRTEC [Concomitant]
     Active Substance: CETIRIZINE HYDROCHLORIDE
  5. FLONASE [Concomitant]
     Active Substance: FLUTICASONE PROPIONATE
  6. ASPIRIN. [Concomitant]
     Active Substance: ASPIRIN
  7. PROGESTERONE. [Concomitant]
     Active Substance: PROGESTERONE

REACTIONS (5)
  - Hypoaesthesia [None]
  - Arthralgia [None]
  - Headache [None]
  - Peripheral swelling [None]
  - Amnesia [None]

NARRATIVE: CASE EVENT DATE: 20090910
